FAERS Safety Report 7778996-X (Version None)
Quarter: 2011Q3

REPORT INFORMATION
  Report Type: 
  Country: None (occurrence: None)
  Receive Date: 20110926
  Receipt Date: 20110919
  Transmission Date: 20111222
  Serious: Yes (Death)
  Sender: FDA-Public Use
  Company Number: DE-PFIZER INC-2011219532

PATIENT

DRUGS (1)
  1. ATGAM [Suspect]
     Indication: APLASTIC ANAEMIA

REACTIONS (1)
  - DISEASE PROGRESSION [None]
